FAERS Safety Report 5213269-0 (Version None)
Quarter: 2007Q1

REPORT INFORMATION
  Report Type: 
  Country: None (occurrence: None)
  Receive Date: 20070119
  Receipt Date: 20070112
  Transmission Date: 20070707
  Serious: Yes (Other)
  Sender: FDA-Public Use
  Company Number: US-JNJFOC-20070103448

PATIENT
  Age: 3 Year
  Sex: Female

DRUGS (1)
  1. FENTANYL TRANSDERMAL SYSTEM [Suspect]
     Indication: ACCIDENTAL EXPOSURE
     Route: 062

REACTIONS (5)
  - ACCIDENTAL EXPOSURE [None]
  - HALLUCINATION [None]
  - INFECTION [None]
  - RESPIRATORY DISORDER [None]
  - SOMNOLENCE [None]
